FAERS Safety Report 13043986 (Version 1)
Quarter: 2016Q4

REPORT INFORMATION
  Report Type: Spontaneous
  Country: US (occurrence: US)
  Receive Date: 20161220
  Receipt Date: 20161220
  Transmission Date: 20170207
  Serious: No
  Sender: FDA-Public Use
  Company Number: US-ROCHE-1013365

PATIENT
  Age: 62 Year
  Sex: Female
  Weight: 43.13 kg

DRUGS (3)
  1. ZELBORAF [Suspect]
     Active Substance: VEMURAFENIB
     Route: 048
  2. ZELBORAF [Suspect]
     Active Substance: VEMURAFENIB
     Dosage: DOSE WAS REDUCED
     Route: 065
  3. ZELBORAF [Suspect]
     Active Substance: VEMURAFENIB
     Indication: MALIGNANT MELANOMA
     Route: 048
     Dates: start: 20110926

REACTIONS (18)
  - Arthralgia [Unknown]
  - Sunburn [Recovered/Resolved]
  - Constipation [Unknown]
  - Pyrexia [Unknown]
  - Blister [Unknown]
  - Skin exfoliation [Unknown]
  - Hypoacusis [Unknown]
  - Pruritus [Unknown]
  - Skin cancer [Unknown]
  - Fatigue [Unknown]
  - Somnolence [Unknown]
  - Myalgia [Unknown]
  - Decreased appetite [Unknown]
  - Vomiting [Unknown]
  - Limb mass [Unknown]
  - Ear discomfort [Unknown]
  - Headache [Unknown]
  - Mass [Unknown]

NARRATIVE: CASE EVENT DATE: 20111001
